FAERS Safety Report 7546424-5 (Version None)
Quarter: 2011Q2

REPORT INFORMATION
  Report Type: 
  Country: None (occurrence: None)
  Receive Date: 20110614
  Receipt Date: 20110530
  Transmission Date: 20111010
  Serious: Yes (Life-Threatening, Hospitalization)
  Sender: FDA-Public Use
  Company Number: ES-CELGENEUS-144-50794-11053786

PATIENT
  Age: 32 Year
  Sex: Male

DRUGS (2)
  1. WHOLE BLOOD [Concomitant]
     Indication: TRANSFUSION
     Route: 051
     Dates: start: 20101012, end: 20110201
  2. VIDAZA [Suspect]
     Dosage: 150 MILLIGRAM
     Route: 050
     Dates: start: 20101101, end: 20110201

REACTIONS (3)
  - HAEMORRHAGE INTRACRANIAL [None]
  - TOXICITY TO VARIOUS AGENTS [None]
  - INFECTION [None]
